FAERS Safety Report 6452861-2 (Version None)
Quarter: 2009Q4

REPORT INFORMATION
  Report Type: 
  Country: None (occurrence: None)
  Receive Date: 20091124
  Receipt Date: 20090115
  Transmission Date: 20100525
  Serious: No
  Sender: FDA-Public Use
  Company Number: US-ABBOTT-09P-163-0498250-00

PATIENT
  Weight: 88.984 kg

DRUGS (9)
  1. TRICOR [Suspect]
     Indication: BLOOD CHOLESTEROL INCREASED
     Route: 048
     Dates: start: 20081001
  2. TRICOR [Suspect]
     Indication: BLOOD TRIGLYCERIDES INCREASED
  3. TRICOR [Suspect]
     Indication: HIGH DENSITY LIPOPROTEIN DECREASED
  4. XANAX [Concomitant]
     Indication: DEPRESSION
     Route: 048
  5. WELLBUTRIN XL [Concomitant]
     Indication: DEPRESSION
     Route: 048
  6. LUVOX [Concomitant]
     Indication: DEPRESSION
     Route: 048
  7. OMEPRAZOLE [Concomitant]
     Indication: BARRETT'S OESOPHAGUS
     Route: 048
  8. AVODART [Concomitant]
     Indication: BENIGN PROSTATIC HYPERPLASIA
     Dosage: .5 QD
     Route: 048
  9. LISINOPRIL [Concomitant]
     Indication: HYPERTENSION
     Route: 048

REACTIONS (6)
  - DIZZINESS [None]
  - DYSPNOEA [None]
  - FATIGUE [None]
  - LABORATORY TEST ABNORMAL [None]
  - MYALGIA [None]
  - PALPITATIONS [None]
